FAERS Safety Report 23633783 (Version 3)
Quarter: 2024Q2

REPORT INFORMATION
  Report Type: Spontaneous
  Country: US (occurrence: US)
  Receive Date: 20240314
  Receipt Date: 20240527
  Transmission Date: 20240716
  Serious: Yes (Other)
  Sender: FDA-Public Use
  Company Number: US-BRISTOL-MYERS SQUIBB COMPANY-2024-041570

PATIENT
  Age: 87 Year
  Sex: Male

DRUGS (1)
  1. REVLIMID [Suspect]
     Active Substance: LENALIDOMIDE
     Indication: Plasma cell myeloma
     Dosage: TAKE 1 CAPSULE BY MOUTH WHOLE W/WATER, W/ OR W/O FOOD AT ABOUT THE SAME TIME DAILY FOR 21 DAYS ON, T
     Route: 048

REACTIONS (4)
  - Inability to afford medication [Unknown]
  - Therapy interrupted [Unknown]
  - Tooth infection [Recovered/Resolved]
  - Macular degeneration [Not Recovered/Not Resolved]
